FAERS Safety Report 10285227 (Version 3)
Quarter: 2014Q3

REPORT INFORMATION
  Report Type: Spontaneous
  Country: US (occurrence: US)
  Receive Date: 20140708
  Receipt Date: 20140821
  Transmission Date: 20150326
  Serious: No
  Sender: FDA-Public Use
  Company Number: US-PFIZER INC-2014186999

PATIENT
  Age: 59 Year
  Sex: Female
  Weight: 117 kg

DRUGS (1)
  1. LIPITOR [Suspect]
     Active Substance: ATORVASTATIN CALCIUM
     Dosage: UNK

REACTIONS (4)
  - Muscular weakness [Unknown]
  - Drug hypersensitivity [Unknown]
  - Muscle spasms [Unknown]
  - Dyspnoea [Unknown]
